FAERS Safety Report 8300426-X (Version None)
Quarter: 2012Q2

REPORT INFORMATION
  Report Type: 
  Country: None (occurrence: None)
  Receive Date: 20120420
  Receipt Date: 20120418
  Transmission Date: 20120825
  Serious: Yes (Hospitalization)
  Sender: FDA-Public Use
  Company Number: US-PFIZER INC-2012097140

PATIENT
  Sex: Female
  Weight: 88.435 kg

DRUGS (3)
  1. REGULAR INSULIN [Concomitant]
     Indication: DIABETES MELLITUS
     Dosage: 5 IU, AS NEEDED
  2. RAPAMUNE [Suspect]
     Indication: RENAL TRANSPLANT
     Dosage: 3 MG, DAILY
     Dates: start: 20070301, end: 20120101
  3. INSULINS AND ANALOGUES, LONG-ACTING [Concomitant]
     Indication: DIABETES MELLITUS
     Dosage: 60 IU, DAILY

REACTIONS (5)
  - PULMONARY FIBROSIS [None]
  - CHRONIC OBSTRUCTIVE PULMONARY DISEASE [None]
  - OXYGEN SATURATION DECREASED [None]
  - OSTEOPOROSIS [None]
  - DYSPNOEA [None]
